FAERS Safety Report 15003508 (Version 2)
Quarter: 2018Q2

REPORT INFORMATION
  Report Type: Spontaneous
  Country: US (occurrence: US)
  Receive Date: 20180613
  Receipt Date: 20180619
  Transmission Date: 20180711
  Serious: Yes (Hospitalization)
  Sender: FDA-Public Use
  Company Number: US-ROCHE-2138212

PATIENT
  Age: 61 Year
  Sex: Female

DRUGS (1)
  1. OCREVUS [Suspect]
     Active Substance: OCRELIZUMAB
     Indication: MULTIPLE SCLEROSIS
     Dosage: 300/10 MG/ML
     Route: 042
     Dates: start: 20180417

REACTIONS (6)
  - Pain [Unknown]
  - Asthenia [Unknown]
  - Muscle spasticity [Unknown]
  - Fall [Unknown]
  - Fatigue [Unknown]
  - Ankle fracture [Unknown]

NARRATIVE: CASE EVENT DATE: 20180515
